FAERS Safety Report 20848503 (Version 1)
Quarter: 2022Q2

REPORT INFORMATION
  Report Type: Spontaneous
  Country: DE (occurrence: DE)
  Receive Date: 20220519
  Receipt Date: 20220519
  Transmission Date: 20220721
  Serious: Yes (Other)
  Sender: FDA-Public Use
  Company Number: DE-drreddys-LIT/GER/22/0150166

PATIENT
  Age: 58 Year
  Sex: Male

DRUGS (11)
  1. DAPTOMYCIN [Suspect]
     Active Substance: DAPTOMYCIN
     Indication: Enterococcal infection
     Route: 042
  2. LINEZOLID [Suspect]
     Active Substance: LINEZOLID
     Indication: Enterococcal infection
     Route: 042
  3. LINEZOLID [Suspect]
     Active Substance: LINEZOLID
     Route: 042
  4. MEROPENEM [Concomitant]
     Active Substance: MEROPENEM
     Indication: Enterococcal infection
     Dosage: 2G INITIAL BOLUS
     Route: 042
  5. MEROPENEM [Concomitant]
     Active Substance: MEROPENEM
     Dosage: 2G EVERY 8 HOURS
     Route: 042
  6. COLISTIN [Concomitant]
     Active Substance: COLISTIN
     Indication: Enterococcal infection
     Dosage: 9MIO LOADING DOSE
     Route: 042
  7. COLISTIN [Concomitant]
     Active Substance: COLISTIN
     Dosage: 2.5MIO EVERY 12 HOURS FOR 3 DAYS
     Route: 042
  8. COLISTIN [Concomitant]
     Active Substance: COLISTIN
     Dosage: 4.5MIO EVERY 12 HOURS FOR ANOTHER 3 DAYS
     Route: 042
  9. CEFIDEROCOL [Concomitant]
     Active Substance: CEFIDEROCOL
     Indication: Enterococcal infection
     Dosage: INITIAL BOLUS
     Route: 042
  10. CEFIDEROCOL [Concomitant]
     Active Substance: CEFIDEROCOL
     Dosage: 1G EVERY 8 HOURS FOR 26 DAYS
     Route: 042
  11. CEFIDEROCOL [Concomitant]
     Active Substance: CEFIDEROCOL
     Dosage: 2G EVERY 8 HOURS FOR 6 DAYS
     Route: 042

REACTIONS (1)
  - Drug ineffective [Unknown]
